FAERS Safety Report 7014266-5 (Version None)
Quarter: 2010Q3

REPORT INFORMATION
  Report Type: 
  Country: None (occurrence: None)
  Receive Date: 20100927
  Receipt Date: 20100915
  Transmission Date: 20110219
  Serious: Yes (Other)
  Sender: FDA-Public Use
  Company Number: CA-JNJFOC-20100905626

PATIENT
  Age: 52 Year
  Sex: Female
  Weight: 52.3 kg

DRUGS (4)
  1. REMICADE [Suspect]
     Indication: CROHN'S DISEASE
     Route: 042
  2. ACTONEL [Concomitant]
  3. PANTOLOC [Concomitant]
  4. VITAMIN B-12 [Concomitant]

REACTIONS (2)
  - OVARIAN CYST [None]
  - VAGINAL CYST [None]
